FAERS Safety Report 11736345 (Version 3)
Quarter: 2019Q1

REPORT INFORMATION
  Report Type: Spontaneous
  Country: CA (occurrence: CA)
  Receive Date: 20151113
  Receipt Date: 20190329
  Transmission Date: 20190417
  Serious: Yes (Other)
  Sender: FDA-Public Use
  Company Number: CA-SA-2015SA174446

PATIENT
  Age: 14 Year
  Sex: Female

DRUGS (2)
  1. ALLERJECT [Suspect]
     Active Substance: EPINEPHRINE
     Dosage: UNK UNK,UNK
     Route: 065
  2. ALLERJECT [Suspect]
     Active Substance: EPINEPHRINE
     Dosage: UNK

REACTIONS (3)
  - Choking [Unknown]
  - Underdose [Unknown]
  - Drug ineffective [Unknown]

NARRATIVE: CASE EVENT DATE: 20151029
